FAERS Safety Report 10416553 (Version 2)
Quarter: 2014Q3

REPORT INFORMATION
  Report Type: Spontaneous
  Country: US (occurrence: US)
  Receive Date: 20140828
  Receipt Date: 20140828
  Transmission Date: 20150326
  Serious: No
  Sender: FDA-Public Use
  Company Number: US-PURDUE-USA-2014-0116454

PATIENT
  Sex: Female

DRUGS (2)
  1. INTERMEZZO [Suspect]
     Active Substance: ZOLPIDEM TARTRATE
     Dosage: 3.75 MG, PM
     Route: 048
  2. INTERMEZZO [Suspect]
     Active Substance: ZOLPIDEM TARTRATE
     Indication: PRODUCT USED FOR UNKNOWN INDICATION
     Dosage: 5 MG, UNK
     Route: 048

REACTIONS (7)
  - Dizziness [Unknown]
  - Feeling abnormal [Unknown]
  - Abdominal discomfort [Unknown]
  - Drug hypersensitivity [Unknown]
  - Nausea [Unknown]
  - Sinusitis [Unknown]
  - Drug intolerance [Unknown]
